FAERS Safety Report 7694510-1 (Version None)
Quarter: 2011Q3

REPORT INFORMATION
  Report Type: 
  Country: None (occurrence: None)
  Receive Date: 20110819
  Receipt Date: 20110818
  Transmission Date: 20111222
  Serious: Yes (Death, Disabling, Other)
  Sender: FDA-Public Use
  Company Number: PHHY2011NL67027

PATIENT
  Sex: Female

DRUGS (2)
  1. SANDOSTATIN LAR [Suspect]
     Indication: CARCINOID TUMOUR
     Dosage: 30 MG, EVERY 2 WEEKS
     Route: 030
     Dates: start: 20080515
  2. SANDOSTATIN LAR [Suspect]
     Dates: start: 20110701

REACTIONS (5)
  - VOMITING [None]
  - DIARRHOEA [None]
  - DEATH [None]
  - NAUSEA [None]
  - GENERAL PHYSICAL HEALTH DETERIORATION [None]
